FAERS Safety Report 8541910-3 (Version None)
Quarter: 2012Q3

REPORT INFORMATION
  Report Type: 
  Country: None (occurrence: None)
  Receive Date: 20120726
  Receipt Date: 20110908
  Transmission Date: 20120928
  Serious: No
  Sender: FDA-Public Use
  Company Number: US-ASTRAZENECA-2011SE54246

PATIENT
  Age: 48 Year
  Sex: Female
  Weight: 88.5 kg

DRUGS (9)
  1. SOMA [Concomitant]
     Indication: MUSCLE SPASMS
     Dates: start: 20090101
  2. OXYCODONE HCL [Concomitant]
     Indication: BACK INJURY
     Dates: start: 20100101
  3. LODINE [Concomitant]
     Indication: ANTIINFLAMMATORY THERAPY
     Dates: start: 20110101
  4. HYDROCODONE BITARTRATE [Concomitant]
     Dosage: ONE TO TWO TABS EVERY SIX HOURS
  5. OXYCODONE HCL [Concomitant]
     Indication: MIGRAINE
     Dates: start: 20100101
  6. MIRAPEX [Concomitant]
     Indication: RESTLESS LEGS SYNDROME
     Dates: start: 20070101
  7. SEROQUEL XR [Suspect]
     Route: 048
     Dates: start: 20100101
  8. HYDROCODONE BITARTRATE [Concomitant]
     Dates: start: 20110101
  9. XANAX [Concomitant]
     Indication: ANXIETY

REACTIONS (4)
  - WRONG TECHNIQUE IN DRUG USAGE PROCESS [None]
  - CHOLELITHIASIS OBSTRUCTIVE [None]
  - PAIN [None]
  - CHOLELITHIASIS [None]
